FAERS Safety Report 23742744 (Version 1)
Quarter: 2024Q2

REPORT INFORMATION
  Report Type: Spontaneous
  Country: FR (occurrence: FR)
  Receive Date: 20240415
  Receipt Date: 20240415
  Transmission Date: 20240716
  Serious: Yes (Hospitalization, Other)
  Sender: FDA-Public Use
  Company Number: None

PATIENT
  Age: 2 Year
  Sex: Female
  Weight: 12.6 kg

DRUGS (16)
  1. ACETAMINOPHEN [Suspect]
     Active Substance: ACETAMINOPHEN
     Indication: Pain
     Dosage: IF NEEDED?ROUTE OF ADMIN: INTRAVENOUS
     Dates: start: 20240220, end: 20240229
  2. MORPHINE [Suspect]
     Active Substance: MORPHINE
     Indication: Pain
     Dosage: ROA: INTRAVENOUS
     Dates: start: 20240222, end: 20240305
  3. NALBUPHINE HYDROCHLORIDE [Suspect]
     Active Substance: NALBUPHINE HYDROCHLORIDE
     Indication: Pain
     Dosage: ROA: INTRAVENOUS
     Dates: start: 20240223, end: 20240304
  4. NALBUPHINE HYDROCHLORIDE [Suspect]
     Active Substance: NALBUPHINE HYDROCHLORIDE
     Dosage: ROA: INTRAVENOUS
     Dates: start: 20240220, end: 20240220
  5. ALFACALCIDOL [Suspect]
     Active Substance: ALFACALCIDOL
     Indication: Vitamin supplementation
     Dosage: ROA: ORAL
     Dates: start: 20240227, end: 20240228
  6. CEFOTAXIME SODIUM [Suspect]
     Active Substance: CEFOTAXIME SODIUM
     Indication: Pyelonephritis
     Dosage: ROA: INTRAVENOUS
     Dates: start: 20240222, end: 20240302
  7. FUROSEMIDE [Suspect]
     Active Substance: FUROSEMIDE
     Indication: Polyuria
     Dates: start: 20240220, end: 20240227
  8. FASTURTEC [Suspect]
     Active Substance: RASBURICASE
     Indication: Prophylaxis
     Dosage: ROA: INTRAVENOUS
     Dates: start: 20240222, end: 20240225
  9. CHOLECALCIFEROL [Suspect]
     Active Substance: CHOLECALCIFEROL
     Indication: Vitamin supplementation
     Dosage: ROA: ORAL
     Dates: start: 20240226, end: 20240228
  10. ALBUMIN (HUMAN) [Suspect]
     Active Substance: ALBUMIN HUMAN
     Indication: Hypogammaglobulinaemia
     Dosage: ROA: INTRAVENOUS
     Dates: start: 20240226, end: 20240226
  11. DEXAMETHASONE [Suspect]
     Active Substance: DEXAMETHASONE
     Indication: Acute lymphocytic leukaemia
     Dosage: ROA: INTRAVENOUS
     Dates: start: 20240223, end: 20240229
  12. DEXTROSE [Concomitant]
     Active Substance: DEXTROSE\DEXTROSE MONOHYDRATE
     Indication: Product used for unknown indication
     Dosage: ROA: INTRAVENOUS
     Dates: start: 20240220
  13. SODIUM CHLORIDE [Concomitant]
     Active Substance: SODIUM CHLORIDE
     Indication: Product used for unknown indication
     Dosage: VARIABLE?ROA: INTRAVENOUS
     Dates: start: 20240220, end: 20240229
  14. VITAMINE K DE SYNTHESE [Concomitant]
     Indication: Product used for unknown indication
     Dosage: ROA: INTRAVENOUS
     Dates: start: 20240226, end: 20240228
  15. METHOTREXATE [Concomitant]
     Active Substance: METHOTREXATE
     Indication: Product used for unknown indication
     Dosage: ROA: INTRATHECAL
     Dates: start: 20240223, end: 20240223
  16. VINCRISTINE SULFATE [Concomitant]
     Active Substance: VINCRISTINE SULFATE
     Indication: Product used for unknown indication
     Dosage: ROA: INTRAVENOUS
     Dates: start: 20240223

REACTIONS (1)
  - Pancreatitis acute [Recovered/Resolved]

NARRATIVE: CASE EVENT DATE: 20240229
